FAERS Safety Report 8811797 (Version 1)
Quarter: 2012Q4

REPORT INFORMATION
  Report Type: 
  Country: US (occurrence: US)
  Receive Date: 20120927
  Receipt Date: 20120927
  Transmission Date: 20130627
  Serious: Yes (Hospitalization)
  Sender: FDA-Public Use
  Company Number: US-GLAXOSMITHKLINE-A0789168A

PATIENT
  Age: 59 Year
  Sex: Male
  Weight: 78.5 kg

DRUGS (7)
  1. AVANDIA [Suspect]
     Indication: DIABETES MELLITUS
     Dosage: 2MG Twice per day
     Route: 048
     Dates: start: 20051012, end: 200701
  2. AVANDAMET [Suspect]
     Indication: DIABETES MELLITUS
     Dosage: 1TAB Twice per day
     Route: 048
     Dates: end: 2005
  3. GLUCOPHAGE [Concomitant]
  4. AMARYL [Concomitant]
  5. ACTONEL [Concomitant]
  6. INSULIN [Concomitant]
  7. LOPID [Concomitant]

REACTIONS (4)
  - Cerebrovascular accident [Not Recovered/Not Resolved]
  - Vertebral artery stenosis [Unknown]
  - Cerebral infarction [Unknown]
  - Atrial fibrillation [Unknown]
